FAERS Safety Report 6565525-1 (Version None)
Quarter: 2010Q1

REPORT INFORMATION
  Report Type: 
  Country: None (occurrence: None)
  Receive Date: 20100201
  Receipt Date: 20100122
  Transmission Date: 20100710
  Serious: Yes (Hospitalization)
  Sender: FDA-Public Use
  Company Number: DE-GILEAD-E2B_00000563

PATIENT
  Sex: Male

DRUGS (8)
  1. AMBRISENTAN [Suspect]
     Indication: DRUG USE FOR UNKNOWN INDICATION
     Route: 048
     Dates: start: 20090701
  2. REVATIO [Concomitant]
     Route: 065
  3. PANTOPRAZOLE [Concomitant]
     Route: 065
  4. METOPROLOL TARTRATE [Concomitant]
     Route: 065
  5. MARCUMAR [Concomitant]
     Route: 065
  6. CLEXANE [Concomitant]
     Route: 065
  7. DECORTIN [Concomitant]
     Route: 065
  8. ARELIX [Concomitant]
     Route: 065

REACTIONS (2)
  - HAEMOPTYSIS [None]
  - SPUTUM DISCOLOURED [None]
